FAERS Safety Report 19082739 (Version 1)
Quarter: 2021Q2

REPORT INFORMATION
  Report Type: Spontaneous
  Country: CH (occurrence: CH)
  Receive Date: 20210401
  Receipt Date: 20210401
  Transmission Date: 20210717
  Serious: Yes (Other)
  Sender: FDA-Public Use
  Company Number: CH-LUPIN PHARMACEUTICALS INC.-2021-04034

PATIENT
  Age: 45 Year
  Sex: Male

DRUGS (8)
  1. FOSAMPRENAVIR [Concomitant]
     Active Substance: FOSAMPRENAVIR
     Indication: HIV INFECTION
     Dosage: UNK
     Route: 065
     Dates: start: 2008
  2. ABACAVIR;DOLUTEGRAVIR;LAMIVUDINE [Suspect]
     Active Substance: ABACAVIR SULFATE\DOLUTEGRAVIR SODIUM\LAMIVUDINE
     Indication: HIV INFECTION
     Dosage: UNK
     Route: 065
     Dates: start: 201506, end: 201910
  3. LAMIVUDINE. [Suspect]
     Active Substance: LAMIVUDINE
     Indication: HIV INFECTION
     Dosage: UNK (IN OCTOBER1999, SSITT AND HIS ANTIVIRAL THERAPY WITH NELFINAVIR, LAMIVUDINE AND STAVUDINE WAS I
     Route: 065
     Dates: start: 1997
  4. RITONAVIR. [Concomitant]
     Active Substance: RITONAVIR
     Indication: HIV INFECTION
     Dosage: UNK
     Route: 065
     Dates: start: 2008
  5. NELFINAVIR [Suspect]
     Active Substance: NELFINAVIR
     Indication: HIV INFECTION
     Dosage: UNK (IN OCTOBER1999, SSITT AND HIS ANTIVIRAL THERAPY WITH NELFINAVIR, LAMIVUDINE AND STAVUDINE WAS I
     Route: 065
     Dates: start: 1997
  6. LOPINAVIR/RITONAVIR [Concomitant]
     Active Substance: LOPINAVIR\RITONAVIR
     Indication: HIV INFECTION
     Dosage: UNK
     Route: 065
     Dates: start: 200810
  7. EMTRICITABINE/TENOFOVIR DISOPROXIL FUMARATE [Concomitant]
     Active Substance: EMTRICITABINE\TENOFOVIR DISOPROXIL FUMARATE
     Indication: HIV INFECTION
     Dosage: UNK
     Route: 065
     Dates: start: 200810
  8. STAVUDINE. [Suspect]
     Active Substance: STAVUDINE
     Indication: HIV INFECTION
     Dosage: UNK (IN OCTOBER1999, SSITT AND HIS ANTIVIRAL THERAPY WITH NELFINAVIR, LAMIVUDINE AND STAVUDINE WAS I
     Route: 065
     Dates: start: 1997

REACTIONS (1)
  - Pathogen resistance [Unknown]
